FAERS Safety Report 6101910-X (Version None)
Quarter: 2009Q1

REPORT INFORMATION
  Report Type: 
  Country: None (occurrence: None)
  Receive Date: 20090304
  Receipt Date: 20090225
  Transmission Date: 20090719
  Serious: Yes (Hospitalization)
  Sender: FDA-Public Use
  Company Number: FR-PFIZER INC-2009176516

PATIENT

DRUGS (12)
  1. SOLU-MEDROL [Suspect]
     Indication: ANAPLASTIC LARGE CELL LYMPHOMA T- AND NULL-CELL TYPES
     Dosage: 60 MG/M2, CYCLIC
     Route: 042
     Dates: start: 20081212, end: 20090113
  2. ADRIBLASTIN [Suspect]
     Indication: ANAPLASTIC LARGE CELL LYMPHOMA T- AND NULL-CELL TYPES
     Dosage: 75 MG/M2, CYCLIC
     Route: 042
     Dates: start: 20081212, end: 20090109
  3. ENDOXAN [Suspect]
     Indication: ANAPLASTIC LARGE CELL LYMPHOMA T- AND NULL-CELL TYPES
     Dosage: 120 MG/M2, CYCLIC
     Route: 042
     Dates: start: 20081212, end: 20090109
  4. ELDISINE [Suspect]
     Indication: ANAPLASTIC LARGE CELL LYMPHOMA T- AND NULL-CELL TYPES
     Dosage: 2 MG/M2, CYCLIC
     Route: 042
     Dates: start: 20081212, end: 20090113
  5. BLEOMYCIN [Suspect]
     Indication: ANAPLASTIC LARGE CELL LYMPHOMA T- AND NULL-CELL TYPES
     Dosage: 10 MG, CYCLIC
     Route: 042
     Dates: start: 20081212, end: 20090113
  6. METHOTREXATE [Suspect]
     Indication: ANAPLASTIC LARGE CELL LYMPHOMA T- AND NULL-CELL TYPES
     Dosage: 15 MG, CYCLIC
     Route: 037
     Dates: start: 20081213, end: 20090110
  7. INIPOMP [Concomitant]
     Dosage: 40 MG, 1X/DAY
  8. PRIMPERAN [Concomitant]
     Dosage: UNK
  9. GAVISCON [Concomitant]
     Dosage: UNK
  10. GRANOCYTE [Concomitant]
     Dosage: UNK
     Dates: start: 20080131, end: 20090121
  11. NICOTINELL [Concomitant]
     Dosage: UNK
  12. EPOETIN BETA [Concomitant]
     Dosage: UNK

REACTIONS (1)
  - PALMAR-PLANTAR ERYTHRODYSAESTHESIA SYNDROME [None]
